FAERS Safety Report 8315589-X (Version None)
Quarter: 2012Q2

REPORT INFORMATION
  Report Type: 
  Country: None (occurrence: None)
  Receive Date: 20120426
  Receipt Date: 20120420
  Transmission Date: 20120825
  Serious: Yes (Hospitalization, Other)
  Sender: FDA-Public Use
  Company Number: CA-ROCHE-1055691

PATIENT
  Sex: Female
  Weight: 124.4 kg

DRUGS (7)
  1. VENTOLIN [Concomitant]
  2. ALESSE [Concomitant]
     Indication: CONTRACEPTION
  3. DIPHENHYDRAMINE HCL [Concomitant]
     Indication: PREMEDICATION
     Route: 048
     Dates: start: 20120411, end: 20120411
  4. AVASTIN [Suspect]
     Indication: GLIOBLASTOMA
     Route: 042
     Dates: start: 20120228
  5. METHYLPREDNISOLONE [Concomitant]
     Indication: PREMEDICATION
     Route: 042
     Dates: start: 20120315, end: 20120315
  6. DECADRON [Concomitant]
  7. ACETAMINOPHEN [Concomitant]
     Indication: PREMEDICATION
     Route: 048
     Dates: start: 20120411, end: 20120411

REACTIONS (6)
  - NEOPLASM [None]
  - GASTROINTESTINAL OBSTRUCTION [None]
  - FATIGUE [None]
  - DRUG INEFFECTIVE [None]
  - HYPERGLYCAEMIA [None]
  - SKIN STRIAE [None]
